FAERS Safety Report 15762853 (Version 4)
Quarter: 2019Q3

REPORT INFORMATION
  Report Type: Not Available
  Country: US (occurrence: US)
  Receive Date: 20181226
  Receipt Date: 20190815
  Transmission Date: 20191004
  Serious: Yes (Hospitalization, Other)
  Sender: FDA-Public Use
  Company Number: US-NEUROCRINE BIOSCIENCES INC.-2018NBI03550

PATIENT
  Age: 63 Year
  Sex: Female

DRUGS (12)
  1. AMLODIPINE [Concomitant]
     Active Substance: AMLODIPINE BESYLATE
  2. SEROQUEL [Concomitant]
     Active Substance: QUETIAPINE FUMARATE
  3. INGREZZA [Suspect]
     Active Substance: VALBENAZINE
     Indication: TARDIVE DYSKINESIA
     Route: 048
     Dates: start: 20180913, end: 20181213
  4. AMITRIPTYLINE [Concomitant]
     Active Substance: AMITRIPTYLINE
     Dosage: AT NIGHT
  5. LUMIGAN [Concomitant]
     Active Substance: BIMATOPROST
  6. KLONOPIN [Concomitant]
     Active Substance: CLONAZEPAM
  7. CLONIDINE. [Concomitant]
     Active Substance: CLONIDINE
  8. ATORVASTATIN [Concomitant]
     Active Substance: ATORVASTATIN
  9. METFORMIN [Concomitant]
     Active Substance: METFORMIN HYDROCHLORIDE
  10. FEROSUL [Concomitant]
  11. AMITRIPTYLINE [Concomitant]
     Active Substance: AMITRIPTYLINE
     Dosage: AT NIGHT
  12. BIOTIN [Concomitant]
     Active Substance: BIOTIN

REACTIONS (7)
  - Loss of consciousness [Unknown]
  - Joint dislocation [Not Recovered/Not Resolved]
  - Mental status changes [Unknown]
  - Humerus fracture [Recovered/Resolved]
  - Dizziness [Recovered/Resolved]
  - Pulmonary embolism [Unknown]
  - Fall [Unknown]

NARRATIVE: CASE EVENT DATE: 201811
